FAERS Safety Report 5195676-8 (Version None)
Quarter: 2006Q4

REPORT INFORMATION
  Report Type: 
  Country: None (occurrence: None)
  Receive Date: 20061227
  Receipt Date: 20061212
  Transmission Date: 20070319
  Serious: Yes (Disabling)
  Sender: FDA-Public Use
  Company Number: 2006SP004373

PATIENT
  Age: 46 Year
  Sex: Female
  Weight: 77.1115 kg

DRUGS (4)
  1. LUNESTA [Suspect]
     Indication: INSOMNIA
     Dosage: SEE IMAGE, ORAL
     Route: 048
     Dates: start: 20061101, end: 20061101
  2. SEROQUEL [Concomitant]
  3. PROZAC [Concomitant]
  4. TEMAZEPAM [Concomitant]

REACTIONS (2)
  - AMNESIA [None]
  - LEGAL PROBLEM [None]
